FAERS Safety Report 9796546 (Version 1)
Quarter: 2014Q1

REPORT INFORMATION
  Report Type: Spontaneous
  Country: GB (occurrence: GB)
  Receive Date: 20140103
  Receipt Date: 20140103
  Transmission Date: 20141002
  Serious: Yes (Other)
  Sender: FDA-Public Use
  Company Number: GB-WATSON-2013-23833

PATIENT
  Age: 83 Year
  Sex: Female
  Weight: 83 kg

DRUGS (6)
  1. MIDAZOLAM (UNKNOWN) [Suspect]
     Indication: GENERAL ANAESTHESIA
     Dosage: 2 MG, UNK
     Route: 042
     Dates: start: 20130325, end: 20130325
  2. DEXAMETHASONE (UNKNOWN) [Suspect]
     Indication: GENERAL ANAESTHESIA
     Dosage: 8 MG, UNK
     Route: 042
     Dates: start: 20130325, end: 20130325
  3. REMIFENTANIL (UNKNOWN) [Suspect]
     Indication: GENERAL ANAESTHESIA
     Dosage: UNK
     Route: 065
     Dates: start: 20130325, end: 20130325
  4. PROPOFOL [Suspect]
     Indication: GENERAL ANAESTHESIA
     Dosage: 70 MG, UNK
     Route: 042
     Dates: start: 20130325, end: 20130325
  5. ROCURONIUM [Suspect]
     Indication: GENERAL ANAESTHESIA
     Dosage: 50 MG, UNK
     Route: 042
     Dates: start: 20130325, end: 20130325
  6. TARGOCID [Suspect]
     Indication: ANTIBIOTIC PROPHYLAXIS
     Dosage: 150 MG, UNK
     Route: 042
     Dates: start: 20130325, end: 20130325

REACTIONS (1)
  - Procedural hypotension [Recovered/Resolved]
